FAERS Safety Report 7033187-5 (Version None)
Quarter: 2010Q4

REPORT INFORMATION
  Report Type: 
  Country: None (occurrence: None)
  Receive Date: 20101007
  Receipt Date: 20100927
  Transmission Date: 20110411
  Serious: Yes (Congenital Anomaly, Other)
  Sender: FDA-Public Use
  Company Number: US-MERCK-1005USA00386B1

PATIENT
  Age: 0 Day
  Sex: Male
  Weight: 3 kg

DRUGS (6)
  1. ISENTRESS [Suspect]
     Route: 064
     Dates: start: 20091114
  2. COMBIVIR [Suspect]
     Route: 064
     Dates: start: 20090628, end: 20091113
  3. VIRAMUNE [Suspect]
     Route: 064
     Dates: start: 20090628, end: 20090712
  4. KALETRA [Suspect]
     Route: 064
     Dates: start: 20090720, end: 20091008
  5. KALETRA [Suspect]
     Route: 064
     Dates: start: 20090720, end: 20091008
  6. VIREAD [Suspect]
     Route: 064
     Dates: start: 20091113

REACTIONS (2)
  - ADRENAL CYST [None]
  - DRUG EXPOSURE DURING PREGNANCY [None]
